FAERS Safety Report 8146135-1 (Version None)
Quarter: 2012Q1

REPORT INFORMATION
  Report Type: 
  Country: None (occurrence: None)
  Receive Date: 20120217
  Receipt Date: 20120214
  Transmission Date: 20120608
  Serious: Yes (Death)
  Sender: FDA-Public Use
  Company Number: JP-PFIZER INC-2011192769

PATIENT
  Age: 62 Year
  Sex: Male
  Weight: 57 kg

DRUGS (8)
  1. PREDNISOLONE [Concomitant]
     Dosage: 10 MG, 1X/DAY
     Route: 042
     Dates: end: 20110815
  2. POLARAMINE [Concomitant]
     Indication: PROPHYLAXIS
     Dosage: 5 MG, WEEKLY
     Route: 042
     Dates: start: 20110728
  3. LANSOPRAZOLE [Concomitant]
     Dosage: 30 MG, 1X/DAY
     Route: 042
     Dates: start: 20110802, end: 20110815
  4. ZOMETA [Concomitant]
     Indication: RENAL CELL CARCINOMA
     Dosage: 4 MG, 1X/DAY
     Route: 042
     Dates: start: 20110730, end: 20110730
  5. MORPHINE HYDROCHLORIDE [Concomitant]
     Indication: PAIN
     Dosage: 10 MG, 1X/DAY
     Route: 054
     Dates: start: 20110728, end: 20110815
  6. SODIUM BICARBONATE [Concomitant]
     Dosage: 2 G, 3X/DAY
     Dates: start: 20110728, end: 20110815
  7. FENTANYL [Concomitant]
     Indication: PAIN
     Dosage: 1.05 MG, 1X/DAY
     Route: 062
     Dates: start: 20110728, end: 20110813
  8. TEMSIROLIMUS [Suspect]
     Indication: RENAL CELL CARCINOMA
     Dosage: 25 MG, WEEKLY
     Route: 041
     Dates: start: 20110728, end: 20110811

REACTIONS (5)
  - MOUTH BREATHING [None]
  - PLEURAL EFFUSION [None]
  - RESPIRATORY FAILURE [None]
  - CARDIO-RESPIRATORY ARREST [None]
  - COMA [None]
